FAERS Safety Report 6588394-2 (Version None)
Quarter: 2010Q1

REPORT INFORMATION
  Report Type: 
  Country: None (occurrence: None)
  Receive Date: 20100218
  Receipt Date: 20091116
  Transmission Date: 20100710
  Serious: Yes (Other)
  Sender: FDA-Public Use
  Company Number: US-ALLERGAN-0912371US

PATIENT
  Age: 52 Year
  Sex: Female

DRUGS (5)
  1. BOTOX [Suspect]
     Indication: TORTICOLLIS
     Dosage: 200 UNITS, UNKNOWN
     Route: 030
     Dates: start: 20090831, end: 20090831
  2. CELEBREX [Concomitant]
     Indication: RHEUMATOID ARTHRITIS
     Route: 048
  3. VYTORIN [Concomitant]
     Route: 048
  4. IMITREX [Concomitant]
     Indication: HEADACHE
     Route: 048
  5. ENBREL [Concomitant]
     Indication: RHEUMATOID ARTHRITIS
     Route: 048

REACTIONS (1)
  - DYSPNOEA [None]
